FAERS Safety Report 8965689 (Version 1)
Quarter: 2012Q4

REPORT INFORMATION
  Report Type: Spontaneous
  Country: US (occurrence: None)
  Receive Date: 20121212
  Receipt Date: 20121212
  Transmission Date: 20130627
  Serious: Yes (Disabling)
  Sender: FDA-Public Use
  Company Number: None

PATIENT
  Age: 37 Year
  Sex: Female
  Weight: 65.77 kg

DRUGS (1)
  1. MUCINEX DM [Suspect]
     Dates: start: 20110114, end: 20110114

REACTIONS (2)
  - Anosmia [None]
  - Ageusia [None]
